FAERS Safety Report 9638900 (Version 2)
Quarter: 2013Q4

REPORT INFORMATION
  Report Type: Spontaneous
  Country: US (occurrence: US)
  Receive Date: 20131022
  Receipt Date: 20131022
  Transmission Date: 20140711
  Serious: No
  Sender: FDA-Public Use
  Company Number: US-BRISTOL-MYERS SQUIBB COMPANY-19104553

PATIENT
  Age: 83 Year
  Sex: Female
  Weight: 80.72 kg

DRUGS (2)
  1. ELIQUIS [Suspect]
     Indication: DEEP VEIN THROMBOSIS
     Route: 048
  2. ELIQUIS [Suspect]
     Indication: ATRIAL FIBRILLATION
     Route: 048

REACTIONS (1)
  - Epistaxis [Recovered/Resolved]
